FAERS Safety Report 20005284 (Version 1)
Quarter: 2021Q4

REPORT INFORMATION
  Report Type: Spontaneous
  Country: HR (occurrence: HR)
  Receive Date: 20211027
  Receipt Date: 20211027
  Transmission Date: 20220304
  Serious: Yes (Other)
  Sender: FDA-Public Use
  Company Number: HR-BIOGEN-2021BI01061913

PATIENT
  Sex: Female

DRUGS (1)
  1. TYSABRI [Suspect]
     Active Substance: NATALIZUMAB
     Indication: Product used for unknown indication
     Route: 065
     Dates: start: 201503

REACTIONS (10)
  - Fibroadenoma of breast [Unknown]
  - Asthenia [Unknown]
  - Fatigue [Unknown]
  - Joint stiffness [Unknown]
  - Paraesthesia [Unknown]
  - Anal incontinence [Not Recovered/Not Resolved]
  - Muscle fatigue [Unknown]
  - Muscular weakness [Unknown]
  - Ataxia [Unknown]
  - Urinary incontinence [Not Recovered/Not Resolved]

NARRATIVE: CASE EVENT DATE: 20180801
